FAERS Safety Report 6746670-4 (Version None)
Quarter: 2010Q2

REPORT INFORMATION
  Report Type: 
  Country: None (occurrence: None)
  Receive Date: 20100528
  Receipt Date: 20100520
  Transmission Date: 20101027
  Serious: Yes (Other)
  Sender: FDA-Public Use
  Company Number: US-PFIZER INC-2010064396

PATIENT
  Age: 67 Year
  Sex: Female
  Weight: 52 kg

DRUGS (4)
  1. ZOLOFT [Suspect]
     Indication: CHEST PAIN
     Dosage: 25 MG, 1X/DAY
     Dates: start: 20100508
  2. ZOLOFT [Suspect]
     Indication: DYSPNOEA
  3. ZOLOFT [Suspect]
     Indication: CRYING
  4. ZOLOFT [Suspect]
     Indication: DIZZINESS

REACTIONS (2)
  - JOINT STIFFNESS [None]
  - MUSCULOSKELETAL STIFFNESS [None]
